FAERS Safety Report 16527752 (Version 1)
Quarter: 2019Q3

REPORT INFORMATION
  Report Type: Spontaneous
  Country: US (occurrence: US)
  Receive Date: 20190703
  Receipt Date: 20190703
  Transmission Date: 20191004
  Serious: Yes (Hospitalization)
  Sender: FDA-Public Use
  Company Number: US-ALVOGEN-2019-ALVOGEN-100390

PATIENT
  Sex: Male

DRUGS (2)
  1. LISINOPRIL. [Suspect]
     Active Substance: LISINOPRIL
     Indication: PRODUCT USED FOR UNKNOWN INDICATION
  2. BRILINTA [Concomitant]
     Active Substance: TICAGRELOR
     Dosage: TWO TIMES A DAY
     Dates: start: 201906

REACTIONS (3)
  - Chest pain [Unknown]
  - Blood pressure decreased [Unknown]
  - Loss of consciousness [Unknown]
